FAERS Safety Report 13630364 (Version 3)
Quarter: 2017Q3

REPORT INFORMATION
  Report Type: Report from Study
  Country: CO (occurrence: CO)
  Receive Date: 20170608
  Receipt Date: 20170803
  Transmission Date: 20171127
  Serious: Yes (Death, Hospitalization, Other)
  Sender: FDA-Public Use
  Company Number: PHHY2017CO079377

PATIENT
  Age: 33 Year
  Sex: Male
  Weight: 50 kg

DRUGS (1)
  1. VOTRIENT [Suspect]
     Active Substance: PAZOPANIB HYDROCHLORIDE
     Indication: SOFT TISSUE SARCOMA
     Dosage: 400 MG, BID
     Route: 048
     Dates: start: 20170412

REACTIONS (7)
  - Malignant neoplasm progression [Fatal]
  - Respiratory arrest [Fatal]
  - Dysstasia [Unknown]
  - Chest pain [Unknown]
  - Hypoaesthesia [Unknown]
  - Soft tissue sarcoma [Fatal]
  - Urinary tract infection [Unknown]

NARRATIVE: CASE EVENT DATE: 20170514
